FAERS Safety Report 5518129-3 (Version None)
Quarter: 2007Q4

REPORT INFORMATION
  Report Type: 
  Country: None (occurrence: None)
  Receive Date: 20071115
  Receipt Date: 20071109
  Transmission Date: 20080405
  Serious: Yes (Death)
  Sender: FDA-Public Use
  Company Number: JP-AVENTIS-200712165JP

PATIENT
  Age: 59 Year
  Sex: Female
  Weight: 50 kg

DRUGS (12)
  1. TAXOTERE [Suspect]
     Route: 041
     Dates: start: 20070312, end: 20070725
  2. PARAPLATIN [Suspect]
     Route: 042
     Dates: start: 20070312, end: 20070606
  3. VOLTAREN [Concomitant]
  4. FAMOTIDINE [Concomitant]
  5. NOVAMIN                            /00013301/ [Concomitant]
  6. OXYCONTIN [Concomitant]
  7. MAGMITT [Concomitant]
  8. MUCOSTA [Concomitant]
  9. OMEPRAL [Concomitant]
  10. KYTRIL                             /01178101/ [Concomitant]
     Indication: PREMEDICATION
     Dates: start: 20070312, end: 20070725
  11. DECADRON [Concomitant]
     Indication: PREMEDICATION
     Dates: start: 20070312, end: 20070725
  12. VENA [Concomitant]
     Indication: PREMEDICATION
     Dates: start: 20070312, end: 20070725

REACTIONS (2)
  - LEUKOENCEPHALOPATHY [None]
  - LUNG NEOPLASM MALIGNANT [None]
